FAERS Safety Report 20123959 (Version 2)
Quarter: 2022Q1

REPORT INFORMATION
  Report Type: Spontaneous
  Country: US (occurrence: US)
  Receive Date: 20211129
  Receipt Date: 20220105
  Transmission Date: 20220424
  Serious: Yes (Hospitalization)
  Sender: FDA-Public Use
  Company Number: US-AMGEN-USASP2021187728

PATIENT
  Age: 41 Year
  Sex: Female

DRUGS (1)
  1. MVASI [Suspect]
     Active Substance: BEVACIZUMAB-AWWB
     Indication: Brain neoplasm
     Dosage: 470 MILLIGRAM
     Route: 065

REACTIONS (3)
  - Dysphagia [Unknown]
  - Dry mouth [Unknown]
  - Cough [Unknown]
